FAERS Safety Report 14680668 (Version 2)
Quarter: 2018Q2

REPORT INFORMATION
  Report Type: Report from Study
  Country: GB (occurrence: GB)
  Receive Date: 20180326
  Receipt Date: 20180516
  Transmission Date: 20180711
  Serious: No
  Sender: FDA-Public Use
  Company Number: GB-PFIZER INC-2018115717

PATIENT
  Age: 15 Year
  Sex: Male

DRUGS (1)
  1. SOMATROPIN. [Suspect]
     Active Substance: SOMATROPIN
     Indication: HYPOPITUITARISM
     Dosage: 2 MG, DAILY
     Route: 058
     Dates: start: 200901

REACTIONS (3)
  - Skin swelling [Unknown]
  - Injection site haemorrhage [Unknown]
  - Injection site bruising [Unknown]
